FAERS Safety Report 24629953 (Version 1)
Quarter: 2024Q4

REPORT INFORMATION
  Report Type: Spontaneous
  Country: US (occurrence: US)
  Receive Date: 20241118
  Receipt Date: 20241118
  Transmission Date: 20250115
  Serious: No
  Sender: CHIESI
  Company Number: US-CHIESI-2024CHF05313

PATIENT
  Sex: Male

DRUGS (12)
  1. ELFABRIO [Suspect]
     Active Substance: PEGUNIGALSIDASE ALFA-IWXJ
     Indication: Fabry^s disease
     Dosage: 65 MILLIGRAM, QOW
     Route: 042
     Dates: start: 20240411
  2. ELFABRIO [Suspect]
     Active Substance: PEGUNIGALSIDASE ALFA-IWXJ
     Dosage: 65 MILLIGRAM
     Route: 042
     Dates: start: 20240419
  3. ELFABRIO [Suspect]
     Active Substance: PEGUNIGALSIDASE ALFA-IWXJ
     Dosage: 65 MILLIGRAM
     Route: 042
     Dates: start: 20240503
  4. ELFABRIO [Suspect]
     Active Substance: PEGUNIGALSIDASE ALFA-IWXJ
     Dosage: 65 MILLIGRAM
     Route: 042
     Dates: start: 20240517
  5. ELFABRIO [Suspect]
     Active Substance: PEGUNIGALSIDASE ALFA-IWXJ
     Dosage: 65 MILLIGRAM
     Route: 042
     Dates: start: 20240614
  6. ELFABRIO [Suspect]
     Active Substance: PEGUNIGALSIDASE ALFA-IWXJ
     Dosage: 65 MILLIGRAM
     Route: 042
     Dates: start: 20240614
  7. ELFABRIO [Suspect]
     Active Substance: PEGUNIGALSIDASE ALFA-IWXJ
     Dosage: 65 MILLIGRAM
     Route: 042
     Dates: start: 20240628
  8. ELFABRIO [Suspect]
     Active Substance: PEGUNIGALSIDASE ALFA-IWXJ
     Dosage: 65 MILLIGRAM
     Route: 042
     Dates: start: 20240712
  9. ELFABRIO [Suspect]
     Active Substance: PEGUNIGALSIDASE ALFA-IWXJ
     Dosage: 65 MILLIGRAM
     Route: 042
     Dates: start: 20240726
  10. ELFABRIO [Suspect]
     Active Substance: PEGUNIGALSIDASE ALFA-IWXJ
     Dosage: 65 MILLIGRAM
     Route: 042
     Dates: start: 20240809
  11. ELFABRIO [Suspect]
     Active Substance: PEGUNIGALSIDASE ALFA-IWXJ
     Dosage: 65 MILLIGRAM
     Route: 042
     Dates: start: 20240822
  12. ELFABRIO [Suspect]
     Active Substance: PEGUNIGALSIDASE ALFA-IWXJ
     Dosage: 70 MILLIGRAM
     Route: 042
     Dates: start: 20240919

REACTIONS (6)
  - Pyrexia [Not Recovered/Not Resolved]
  - Nasopharyngitis [Not Recovered/Not Resolved]
  - Abdominal pain upper [Not Recovered/Not Resolved]
  - Weight increased [Unknown]
  - Dyspepsia [Not Recovered/Not Resolved]
  - Chills [Not Recovered/Not Resolved]

NARRATIVE: CASE EVENT DATE: 20240101
